FAERS Safety Report 5887736-0 (Version None)
Quarter: 2008Q3

REPORT INFORMATION
  Report Type: 
  Country: None (occurrence: None)
  Receive Date: 20080917
  Receipt Date: 20080917
  Transmission Date: 20090109
  Serious: Yes (Other)
  Sender: FDA-Public Use
  Company Number: None

PATIENT
  Sex: Female

DRUGS (4)
  1. LAMOTRIGINE [Suspect]
     Indication: BIPOLAR I DISORDER
     Dosage: 200 MG ONE QD ORAL
     Route: 048
     Dates: start: 20080804, end: 20080818
  2. CITALOPRAM HYDROBROMIDE [Concomitant]
  3. TRAZODONE HCL [Concomitant]
  4. DIAZEPAM [Concomitant]

REACTIONS (4)
  - PHARMACEUTICAL PRODUCT COMPLAINT [None]
  - RASH MACULAR [None]
  - RASH MACULO-PAPULAR [None]
  - RASH PRURITIC [None]
